FAERS Safety Report 18028423 (Version 8)
Quarter: 2022Q2

REPORT INFORMATION
  Report Type: Spontaneous
  Country: CA (occurrence: None)
  Receive Date: 20200715
  Receipt Date: 20220422
  Transmission Date: 20220721
  Serious: Yes (Other)
  Sender: FDA-Public Use
  Company Number: 2020SE86744

PATIENT
  Age: 49 Year
  Sex: Female

DRUGS (8)
  1. FULVESTRANT [Suspect]
     Active Substance: FULVESTRANT
     Indication: Breast cancer
     Route: 005
  2. TAMOXIFEN [Suspect]
     Active Substance: TAMOXIFEN
     Indication: Breast cancer
     Route: 065
  3. XELODA [Suspect]
     Active Substance: CAPECITABINE
     Indication: Breast cancer
     Route: 048
  4. LETROZOLE [Suspect]
     Active Substance: LETROZOLE
     Indication: Breast cancer
     Route: 065
  5. PACLITAXEL [Suspect]
     Active Substance: PACLITAXEL
     Indication: Breast cancer
     Route: 042
  6. ERIBULIN MESYLATE [Suspect]
     Active Substance: ERIBULIN MESYLATE
     Indication: Breast cancer
     Dosage: 2 ML SINGLE USE VIAL.
     Route: 041
     Dates: start: 201605, end: 201611
  7. CLODRONIC ACID [Suspect]
     Active Substance: CLODRONIC ACID
     Indication: Breast cancer
     Route: 065
  8. IBRANCE [Suspect]
     Active Substance: PALBOCICLIB
     Indication: Breast cancer
     Route: 065

REACTIONS (13)
  - Meningoencephalitis herpetic [Recovering/Resolving]
  - Malignant neoplasm progression [Recovering/Resolving]
  - Metastases to central nervous system [Recovering/Resolving]
  - Metastases to eye [Recovering/Resolving]
  - Metastases to liver [Recovering/Resolving]
  - Immunosuppression [Recovering/Resolving]
  - Protein total increased [Recovering/Resolving]
  - White blood cell count increased [Recovering/Resolving]
  - Breast cancer [Recovering/Resolving]
  - Herpes simplex encephalitis [Unknown]
  - Asthenia [Recovering/Resolving]
  - Headache [Recovering/Resolving]
  - Platelet count decreased [Recovering/Resolving]
